FAERS Safety Report 9734379 (Version 1)
Quarter: 2013Q4

REPORT INFORMATION
  Report Type: Spontaneous
  Country: US (occurrence: US)
  Receive Date: 20131206
  Receipt Date: 20131206
  Transmission Date: 20140711
  Serious: Yes (Other)
  Sender: FDA-Public Use
  Company Number: US-SUN PHARMACEUTICAL INDUSTRIES LTD-2013SUN05113

PATIENT
  Age: 26 Year
  Sex: Male

DRUGS (1)
  1. SUMATRIPTAN SUCCINATE INJECTION 6 MG/0.5 ML [Suspect]
     Indication: MIGRAINE
     Route: 058

REACTIONS (6)
  - Autonomic dysreflexia [Recovered/Resolved]
  - Hyperhidrosis [Recovered/Resolved]
  - Neck pain [Recovered/Resolved]
  - Musculoskeletal stiffness [Recovered/Resolved]
  - Myalgia [Recovered/Resolved]
  - Headache [Recovered/Resolved]
